FAERS Safety Report 7272033-1 (Version None)
Quarter: 2011Q1

REPORT INFORMATION
  Report Type: 
  Country: None (occurrence: None)
  Receive Date: 20110203
  Receipt Date: 20110131
  Transmission Date: 20110831
  Serious: Yes (Other)
  Sender: FDA-Public Use
  Company Number: US-PFIZER INC-2010081100

PATIENT
  Sex: Female

DRUGS (1)
  1. CHANTIX [Suspect]
     Dosage: UNK
     Dates: start: 20090108

REACTIONS (3)
  - LOSS OF CONSCIOUSNESS [None]
  - LIMB INJURY [None]
  - EMOTIONAL DISTRESS [None]
